FAERS Safety Report 13831464 (Version 2)
Quarter: 2017Q4

REPORT INFORMATION
  Report Type: Spontaneous
  Country: US (occurrence: US)
  Receive Date: 20170803
  Receipt Date: 20171020
  Transmission Date: 20180320
  Serious: Yes (Other)
  Sender: FDA-Public Use
  Company Number: US-BAYER-2017-144868

PATIENT
  Age: 45 Year
  Sex: Female
  Weight: 86.17 kg

DRUGS (2)
  1. KOVALTRY [Suspect]
     Active Substance: ANTIHEMOPHILIC FACTOR, HUMAN RECOMBINANT
     Indication: HAEMOPHILIA
     Dosage: UNK
  2. KOVALTRY [Suspect]
     Active Substance: ANTIHEMOPHILIC FACTOR, HUMAN RECOMBINANT
     Indication: HAEMOPHILIA
     Dosage: LAST BLEED DOSE
     Dates: start: 20170726, end: 20170726

REACTIONS (2)
  - Traumatic haemorrhage [None]
  - Limb injury [None]

NARRATIVE: CASE EVENT DATE: 20170724
